FAERS Safety Report 16433149 (Version 2)
Quarter: 2023Q4

REPORT INFORMATION
  Report Type: Spontaneous
  Country: US (occurrence: US)
  Receive Date: 20190614
  Receipt Date: 20231117
  Transmission Date: 20240110
  Serious: Yes (Other)
  Sender: FDA-Public Use
  Company Number: US-JNJFOC-20170510276

PATIENT
  Sex: Male
  Weight: 45.4 kg

DRUGS (4)
  1. RISPERDAL [Suspect]
     Active Substance: RISPERIDONE
     Indication: Behaviour disorder
     Dosage: 0.25 MG, 0.5 MG TWICE DAILY
     Route: 048
  2. RISPERDAL [Suspect]
     Active Substance: RISPERIDONE
     Indication: Agitation
     Route: 048
  3. RISPERDAL [Suspect]
     Active Substance: RISPERIDONE
     Indication: Aggression
  4. RISPERDAL [Suspect]
     Active Substance: RISPERIDONE
     Indication: Depression

REACTIONS (5)
  - Weight increased [Not Recovered/Not Resolved]
  - Hyperphagia [Unknown]
  - Thirst [Unknown]
  - Drug ineffective [Unknown]
  - Off label use [Unknown]
